FAERS Safety Report 9817545 (Version 2)
Quarter: 2016Q1

REPORT INFORMATION
  Report Type: Report from Study
  Country: US (occurrence: US)
  Receive Date: 20140115
  Receipt Date: 20160204
  Transmission Date: 20160526
  Serious: Yes (Other)
  Sender: FDA-Public Use
  Company Number: US-ROCHE-1330949

PATIENT
  Age: 52 Year
  Sex: Female
  Weight: 125 kg

DRUGS (28)
  1. ADVAIR HFA [Concomitant]
     Active Substance: FLUTICASONE PROPIONATE\SALMETEROL XINAFOATE
     Dosage: 1 PUFF TWICE DAILY
     Route: 065
  2. ZYFLO [Concomitant]
     Active Substance: ZILEUTON
     Route: 065
  3. ALBUTEROL. [Concomitant]
     Active Substance: ALBUTEROL
     Indication: WHEEZING
     Dosage: INHALE 2 PUFFS INTO LUNGS AS NEEDE
     Route: 065
  4. PREDNISONE. [Concomitant]
     Active Substance: PREDNISONE
     Dosage: FOR 4 DAYS
     Route: 065
  5. GABAPENTIN. [Concomitant]
     Active Substance: GABAPENTIN
     Route: 048
  6. BUDESONIDE. [Concomitant]
     Active Substance: BUDESONIDE
  7. METFORMIN [Concomitant]
     Active Substance: METFORMIN HYDROCHLORIDE
     Dosage: WITH MEALS
     Route: 048
  8. XOLAIR [Suspect]
     Active Substance: OMALIZUMAB
     Indication: ASTHMA
     Route: 058
     Dates: end: 20140121
  9. ASPIRIN. [Concomitant]
     Active Substance: ASPIRIN
     Route: 065
  10. INSULIN ASPART [Concomitant]
     Active Substance: INSULIN ASPART
     Dosage: 34UNITS BEFORE BREAKFAST AD 44UNITS BEFORE DINNER
     Route: 058
  11. CETIRIZINE [Concomitant]
     Active Substance: CETIRIZINE HYDROCHLORIDE
     Route: 048
  12. LISINOPRIL. [Concomitant]
     Active Substance: LISINOPRIL
     Route: 048
  13. NASONEX [Concomitant]
     Active Substance: MOMETASONE FUROATE
  14. INSULIN GLARGINE [Concomitant]
     Active Substance: INSULIN GLARGINE
     Indication: DIABETES MELLITUS
     Dosage: INJEC 70U INTO SKIN AT BEDTIME
     Route: 065
  15. MELOXICAM. [Concomitant]
     Active Substance: MELOXICAM
     Route: 048
  16. BENZTROPINE [Concomitant]
     Active Substance: BENZTROPINE
     Route: 048
  17. FLUTICASONE [Concomitant]
     Active Substance: FLUTICASONE\FLUTICASONE PROPIONATE
     Dosage: 1 SPRAY BY NASAL ROUTE PRN
     Route: 045
  18. QVAR [Concomitant]
     Active Substance: BECLOMETHASONE DIPROPIONATE
     Dosage: 2 PUFFS TWICE DAILY
     Route: 065
  19. NICOTINE POLACRILEX [Concomitant]
     Active Substance: NICOTINE
     Dosage: AS NEEDED
     Route: 048
  20. PREDNISONE. [Concomitant]
     Active Substance: PREDNISONE
     Dosage: FOR 3 DAYS
     Route: 065
  21. XOLAIR [Suspect]
     Active Substance: OMALIZUMAB
     Indication: RHINITIS ALLERGIC
     Dosage: START DATE: 06/AUG/2013
     Route: 058
  22. FLUPHENAZINE [Concomitant]
     Active Substance: FLUPHENAZINE
     Dosage: 1 IN AM AND 2 AT NIGHT
     Route: 048
  23. PREDNISONE. [Concomitant]
     Active Substance: PREDNISONE
     Dosage: FOR 3 DAYS
     Route: 065
  24. OXYBUTYNIN [Concomitant]
     Active Substance: OXYBUTYNIN
     Route: 048
  25. NOVOLOG [Concomitant]
     Active Substance: INSULIN ASPART
     Dosage: 34 UNTS BEFORE BREAK/LUNCH 44 BEFORE DINNER
     Route: 058
  26. ESCITALOPRAM [Concomitant]
     Active Substance: ESCITALOPRAM OXALATE
     Route: 048
  27. OMEPRAZOLE. [Concomitant]
     Active Substance: OMEPRAZOLE
     Route: 065
  28. LIRAGLUTIDE [Concomitant]
     Active Substance: LIRAGLUTIDE
     Dosage: INJECT 0.3 MLS INTO SKIN
     Route: 058

REACTIONS (17)
  - Red cell distribution width increased [Unknown]
  - Neutrophil count increased [Unknown]
  - Blood glucose increased [Unknown]
  - Haematocrit decreased [Unknown]
  - Anion gap decreased [Unknown]
  - Mean cell volume decreased [Unknown]
  - Lymphocyte count decreased [Unknown]
  - Nodule [Unknown]
  - White blood cell count increased [Unknown]
  - Glycosylated haemoglobin increased [Unknown]
  - Mucosal discolouration [Unknown]
  - Haemoglobin increased [Unknown]
  - Mean cell haemoglobin concentration decreased [Unknown]
  - Red blood cell count increased [Unknown]
  - Asthma [Unknown]
  - Forced expiratory volume decreased [Unknown]
  - High density lipoprotein decreased [Unknown]

NARRATIVE: CASE EVENT DATE: 20120106
